FAERS Safety Report 24277784 (Version 1)
Quarter: 2024Q3

REPORT INFORMATION
  Report Type: Spontaneous
  Country: US (occurrence: None)
  Receive Date: 20240830
  Receipt Date: 20240830
  Transmission Date: 20241017
  Serious: No
  Sender: Public
  Company Number: None

PATIENT
  Age: 84 Year
  Sex: Female

DRUGS (1)
  1. LENALIDOMIDE [Suspect]
     Active Substance: LENALIDOMIDE
     Indication: Diffuse large B-cell lymphoma
     Dosage: 15MG QD ORAL
     Route: 048
     Dates: start: 20230516

REACTIONS (4)
  - Sepsis [None]
  - Multiple organ dysfunction syndrome [None]
  - Febrile neutropenia [None]
  - Colitis [None]

NARRATIVE: CASE EVENT DATE: 20240820
